FAERS Safety Report 9436963 (Version 1)
Quarter: 2013Q3

REPORT INFORMATION
  Report Type: Spontaneous
  Country: US (occurrence: US)
  Receive Date: 20130802
  Receipt Date: 20130802
  Transmission Date: 20140515
  Serious: Yes (Other)
  Sender: FDA-Public Use
  Company Number: US-BRISTOL-MYERS SQUIBB COMPANY-19155308

PATIENT
  Sex: Male

DRUGS (1)
  1. COUMADIN [Suspect]
     Indication: POOR VENOUS ACCESS

REACTIONS (2)
  - Retinal vascular thrombosis [Unknown]
  - Blindness unilateral [Unknown]
